FAERS Safety Report 7380298-0 (Version None)
Quarter: 2011Q1

REPORT INFORMATION
  Report Type: 
  Country: None (occurrence: None)
  Receive Date: 20110318
  Receipt Date: 20110302
  Transmission Date: 20110831
  Serious: Yes (Hospitalization, Other)
  Sender: FDA-Public Use
  Company Number: 2011P1004504

PATIENT
  Age: 74 Year
  Sex: Female

DRUGS (16)
  1. ASPIRIN [Concomitant]
  2. SINGULAIR [Concomitant]
  3. APIXABAN [Suspect]
     Indication: THROMBOSIS PROPHYLAXIS
     Dosage: 2 TABLETS, QD, PO
     Route: 048
     Dates: start: 20101209, end: 20101223
  4. APIXABAN [Suspect]
     Indication: THROMBOSIS PROPHYLAXIS
     Dosage: 2 TABLETS, QD, PO
     Route: 048
     Dates: start: 20101224, end: 20110106
  5. LOSEC (OMEPRAZOLE) [Concomitant]
  6. FLUTICASONE PROPIONATE [Concomitant]
  7. FOSALAN (ALENDRONATE SODIUM) [Concomitant]
  8. AMLODIPINE [Concomitant]
  9. ROSUVASTATIN [Suspect]
  10. PREDNISONE [Concomitant]
  11. AEROVENT (IPRATROPIUM BROMIDE) [Concomitant]
  12. ENOXAPARIN [Suspect]
     Indication: THROMBOSIS PROPHYLAXIS
     Dosage: QD, SC
     Route: 058
     Dates: start: 20101209, end: 20101215
  13. PLACEBO [Suspect]
     Indication: THROMBOSIS PROPHYLAXIS
     Dates: start: 20101209, end: 20101201
  14. ETODOLAC [Suspect]
     Dosage: PO
     Route: 048
  15. DERALIN (PROPRANOLOL HCL) [Concomitant]
  16. FUSID (FUROSEMIDE) [Concomitant]

REACTIONS (9)
  - KLEBSIELLA INFECTION [None]
  - ASPARTATE AMINOTRANSFERASE INCREASED [None]
  - CHOLECYSTITIS [None]
  - ALANINE AMINOTRANSFERASE INCREASED [None]
  - CELLULITIS [None]
  - LIVER FUNCTION TEST ABNORMAL [None]
  - GAMMA-GLUTAMYLTRANSFERASE INCREASED [None]
  - URINARY TRACT INFECTION [None]
  - CHOLELITHIASIS [None]
